FAERS Safety Report 6244900-9 (Version None)
Quarter: 2009Q2

REPORT INFORMATION
  Report Type: 
  Country: None (occurrence: None)
  Receive Date: 20090625
  Receipt Date: 20090612
  Transmission Date: 20091009
  Serious: Yes (Hospitalization, Other)
  Sender: FDA-Public Use
  Company Number: PHHY2009FR23492

PATIENT
  Sex: Female

DRUGS (3)
  1. STALEVO 100 [Suspect]
     Indication: PARKINSON'S DISEASE
     Dosage: UNK
     Route: 048
     Dates: start: 20080101
  2. DEROXAT [Suspect]
  3. PERINDOPRIL ERBUMINE [Concomitant]
     Indication: CARDIOVASCULAR DISORDER

REACTIONS (6)
  - ASTHENIA [None]
  - DIARRHOEA [None]
  - HYPOALBUMINAEMIA [None]
  - HYPOKALAEMIA [None]
  - MALNUTRITION [None]
  - WEIGHT DECREASED [None]
